FAERS Safety Report 5620313-5 (Version None)
Quarter: 2008Q1

REPORT INFORMATION
  Report Type: 
  Country: None (occurrence: None)
  Receive Date: 20080208
  Receipt Date: 20080131
  Transmission Date: 20080703
  Serious: Yes (Hospitalization, Other)
  Sender: FDA-Public Use
  Company Number: PHBS2008JP00694

PATIENT
  Age: 56 Year
  Sex: Female

DRUGS (2)
  1. CARBAMAZEPINE [Suspect]
     Indication: GLOSSOPHARYNGEAL NEURALGIA
     Dosage: 200 MG /DAY
  2. CARBAMAZEPINE [Suspect]
     Dosage: 400 MG/DAY

REACTIONS (5)
  - BRADYCARDIA [None]
  - CARDIAC ARREST [None]
  - CARDIAC PACEMAKER INSERTION [None]
  - COORDINATION ABNORMAL [None]
  - SYNCOPE [None]
